FAERS Safety Report 5224509-6 (Version None)
Quarter: 2007Q1

REPORT INFORMATION
  Report Type: 
  Country: None (occurrence: None)
  Receive Date: 20070130
  Receipt Date: 20070118
  Transmission Date: 20070707
  Serious: Yes (Other)
  Sender: FDA-Public Use
  Company Number: FR-PFIZER INC-2007005182

PATIENT
  Age: 71 Year
  Sex: Female

DRUGS (1)
  1. LYRICA [Suspect]
     Indication: SCIATICA

REACTIONS (4)
  - CHEST DISCOMFORT [None]
  - FEELING DRUNK [None]
  - THROAT TIGHTNESS [None]
  - VERTIGO [None]
